FAERS Safety Report 18619708 (Version 3)
Quarter: 2022Q3

REPORT INFORMATION
  Report Type: Spontaneous
  Country: US (occurrence: US)
  Receive Date: 20201215
  Receipt Date: 20220919
  Transmission Date: 20221026
  Serious: Yes (Other)
  Sender: FDA-Public Use
  Company Number: US-PFIZER INC-2020492037

PATIENT
  Age: 86 Year
  Sex: Female
  Weight: 90.26 kg

DRUGS (1)
  1. PREMARIN [Suspect]
     Active Substance: ESTROGENS, CONJUGATED
     Indication: Hysterectomy
     Dosage: 0.3 MG, 1X/DAY
     Route: 048

REACTIONS (6)
  - Chronic lymphocytic leukaemia [Unknown]
  - Atrial fibrillation [Recovered/Resolved]
  - Hyperhidrosis [Not Recovered/Not Resolved]
  - Body height decreased [Unknown]
  - Ear disorder [Unknown]
  - Off label use [Unknown]

NARRATIVE: CASE EVENT DATE: 20220901
